FAERS Safety Report 12080485 (Version 1)
Quarter: 2016Q1

REPORT INFORMATION
  Report Type: Spontaneous
  Country: US (occurrence: None)
  Receive Date: 20160212
  Receipt Date: 20160212
  Transmission Date: 20160526
  Serious: Yes (Hospitalization)
  Sender: FDA-Public Use
  Company Number: None

PATIENT
  Age: 46 Year
  Sex: Female
  Weight: 76 kg

DRUGS (5)
  1. METHOTREXATE [Suspect]
     Active Substance: METHOTREXATE
     Dates: end: 20160112
  2. ONCASPAR [Suspect]
     Active Substance: PEGASPARGASE
     Dates: end: 20160112
  3. MERCAPTOPURINE. [Suspect]
     Active Substance: MERCAPTOPURINE
     Dates: end: 20160111
  4. CYTARABINE. [Suspect]
     Active Substance: CYTARABINE
     Dates: end: 20160108
  5. CYCLOPHOSPHAMIDE. [Suspect]
     Active Substance: CYCLOPHOSPHAMIDE
     Dates: end: 20151229

REACTIONS (11)
  - Febrile neutropenia [None]
  - Aspartate aminotransferase increased [None]
  - Fatigue [None]
  - Asthenia [None]
  - Alanine aminotransferase increased [None]
  - Nausea [None]
  - Dizziness [None]
  - Confusional state [None]
  - Diarrhoea [None]
  - Thrombocytopenia [None]
  - Blood bilirubin increased [None]

NARRATIVE: CASE EVENT DATE: 20160114
